FAERS Safety Report 25908097 (Version 3)
Quarter: 2025Q4

REPORT INFORMATION
  Report Type: Spontaneous
  Country: TR (occurrence: TR)
  Receive Date: 20251010
  Receipt Date: 20251118
  Transmission Date: 20260117
  Serious: Yes (Other)
  Sender: NOVARTIS
  Company Number: TR-002147023-NVSC2025TR155900

PATIENT
  Age: 80 Year
  Sex: Female

DRUGS (2)
  1. FEMARA [Suspect]
     Active Substance: LETROZOLE
     Indication: HER2 negative breast cancer
     Dosage: UNK
     Route: 065
     Dates: start: 201712
  2. PACLITAXEL [Concomitant]
     Active Substance: PACLITAXEL
     Indication: Chemotherapy
     Dosage: UNK, QW
     Route: 065

REACTIONS (3)
  - Metastases to liver [Unknown]
  - Metastases to bone [Unknown]
  - Metastases to lung [Unknown]

NARRATIVE: CASE EVENT DATE: 20180901
